FAERS Safety Report 15734053 (Version 1)
Quarter: 2018Q4

REPORT INFORMATION
  Report Type: Spontaneous
  Country: US (occurrence: US)
  Receive Date: 20181217
  Receipt Date: 20181217
  Transmission Date: 20190205
  Serious: Yes (Death)
  Sender: FDA-Public Use
  Company Number: None

PATIENT
  Age: 22 Year
  Sex: Male

DRUGS (4)
  1. KRATOM [Suspect]
     Active Substance: MITRAGYNINE\HERBALS
  2. MORPHINE [Concomitant]
     Active Substance: MORPHINE
  3. CODEINE [Concomitant]
     Active Substance: CODEINE
  4. NORFENTANYL [Concomitant]
     Active Substance: NORFENTANYL

REACTIONS (1)
  - Drug screen positive [None]

NARRATIVE: CASE EVENT DATE: 20171123
